FAERS Safety Report 7157410-1 (Version None)
Quarter: 2010Q4

REPORT INFORMATION
  Report Type: 
  Country: None (occurrence: None)
  Receive Date: 20101214
  Receipt Date: 20101210
  Transmission Date: 20110411
  Serious: Yes (Hospitalization)
  Sender: FDA-Public Use
  Company Number: A0846722A

PATIENT
  Sex: Female

DRUGS (1)
  1. TYKERB [Suspect]
     Dosage: 1000MG PER DAY
     Route: 048
     Dates: start: 20100126, end: 20101122

REACTIONS (4)
  - CHEST DISCOMFORT [None]
  - DRY SKIN [None]
  - MALIGNANT NEOPLASM PROGRESSION [None]
  - PARAESTHESIA [None]
